FAERS Safety Report 15741629 (Version 3)
Quarter: 2018Q4

REPORT INFORMATION
  Report Type: Spontaneous
  Country: US (occurrence: US)
  Receive Date: 20181219
  Receipt Date: 20181227
  Transmission Date: 20190205
  Serious: No
  Sender: FDA-Public Use
  Company Number: US-SA-2018SA389453

PATIENT
  Age: 15 Month

DRUGS (1)
  1. LUMIZYME [Suspect]
     Active Substance: ALGLUCOSIDASE ALFA
     Indication: GLYCOGEN STORAGE DISEASE TYPE II
     Route: 041

REACTIONS (2)
  - Pyrexia [Unknown]
  - Flushing [Unknown]

NARRATIVE: CASE EVENT DATE: 201812
